FAERS Safety Report 24740708 (Version 1)
Quarter: 2024Q4

REPORT INFORMATION
  Report Type: Spontaneous
  Country: US (occurrence: US)
  Receive Date: 20241217
  Receipt Date: 20241217
  Transmission Date: 20250114
  Serious: No
  Sender: AUROBINDO
  Company Number: US-AUROBINDO-AUR-APL-2024-054367

PATIENT
  Age: 79 Year
  Sex: Male
  Weight: 69.853 kg

DRUGS (2)
  1. FINASTERIDE [Suspect]
     Active Substance: FINASTERIDE
     Indication: Prostatomegaly
     Dosage: UNK
     Route: 065
  2. FINASTERIDE [Suspect]
     Active Substance: FINASTERIDE
     Indication: Alopecia

REACTIONS (2)
  - Drug ineffective [Unknown]
  - Product quality issue [Unknown]
